FAERS Safety Report 7194477-9 (Version None)
Quarter: 2010Q4

REPORT INFORMATION
  Report Type: 
  Country: None (occurrence: None)
  Receive Date: 20101223
  Receipt Date: 20101214
  Transmission Date: 20110411
  Serious: Yes (Hospitalization)
  Sender: FDA-Public Use
  Company Number: US-ACTELION-A-US2009-26562

PATIENT

DRUGS (3)
  1. BOSENTAN TABLET UNKNOWN US MG [Suspect]
     Indication: PULMONARY ARTERIAL HYPERTENSION
     Dosage: UNK MG, UNK
     Route: 048
     Dates: start: 20070614
  2. BOSENTAN TABLET UNKNOWN US MG [Suspect]
     Dosage: 125 MG, BID
     Route: 048
     Dates: start: 20090701
  3. COUMADIN [Concomitant]

REACTIONS (13)
  - CHOLELITHIASIS [None]
  - COUGH [None]
  - DEHYDRATION [None]
  - DYSPNOEA [None]
  - GALLBLADDER PAIN [None]
  - INTERNATIONAL NORMALISED RATIO INCREASED [None]
  - NAUSEA [None]
  - PNEUMONIA [None]
  - PNEUMONIA ASPIRATION [None]
  - PNEUMONITIS [None]
  - PULMONARY ALVEOLAR HAEMORRHAGE [None]
  - PULMONARY ARTERIAL HYPERTENSION [None]
  - VOMITING [None]
